FAERS Safety Report 18051499 (Version 5)
Quarter: 2020Q3

REPORT INFORMATION
  Report Type: Report from Study
  Country: US (occurrence: US)
  Receive Date: 20200721
  Receipt Date: 20200825
  Transmission Date: 20201103
  Serious: Yes (Hospitalization)
  Sender: FDA-Public Use
  Company Number: US-ACTELION-A-US2020-207230

PATIENT
  Age: 52 Year
  Sex: Male
  Weight: 65.76 kg

DRUGS (6)
  1. REVATIO [Concomitant]
     Active Substance: SILDENAFIL CITRATE
  2. UPTRAVI [Suspect]
     Active Substance: SELEXIPAG
     Dosage: 600 MCG, BID
     Route: 048
  3. LETAIRIS [Suspect]
     Active Substance: AMBRISENTAN
     Indication: PULMONARY ARTERIAL HYPERTENSION
     Dosage: 10 MG, QD
     Route: 065
     Dates: start: 20200505
  4. UPTRAVI [Suspect]
     Active Substance: SELEXIPAG
     Indication: PULMONARY ARTERIAL HYPERTENSION
     Dosage: 400 MCG, BID
     Route: 048
  5. SILDENAFIL CITRATE. [Concomitant]
     Active Substance: SILDENAFIL CITRATE
  6. UPTRAVI [Suspect]
     Active Substance: SELEXIPAG
     Dosage: 200 MCG, BID
     Route: 048

REACTIONS (35)
  - Medical observation [Unknown]
  - Cardiac disorder [Unknown]
  - Memory impairment [Unknown]
  - Palpitations [Unknown]
  - Gait disturbance [Unknown]
  - Paraesthesia [Unknown]
  - Cardiac valve thickening [Unknown]
  - Nausea [Unknown]
  - Vasodilatation [Unknown]
  - Flushing [Unknown]
  - Brain natriuretic peptide increased [Unknown]
  - Blood pressure decreased [Unknown]
  - Asthenia [Unknown]
  - Oedema [Not Recovered/Not Resolved]
  - Arthritis [Not Recovered/Not Resolved]
  - Drug ineffective [Unknown]
  - Somnolence [Unknown]
  - Feeling abnormal [Unknown]
  - Oedema peripheral [Unknown]
  - Chest discomfort [Unknown]
  - Frequent bowel movements [Not Recovered/Not Resolved]
  - Stress [Unknown]
  - Incorrect dose administered [Unknown]
  - Pulmonary oedema [Unknown]
  - Eye disorder [Unknown]
  - Diarrhoea [Unknown]
  - Dizziness [Unknown]
  - Haematocrit decreased [Unknown]
  - Arthralgia [Unknown]
  - Myalgia [Unknown]
  - Tachycardia [Unknown]
  - Abdominal discomfort [Unknown]
  - Limb discomfort [Unknown]
  - Abdominal distension [Unknown]
  - Insomnia [Unknown]

NARRATIVE: CASE EVENT DATE: 20200708
